FAERS Safety Report 9972427 (Version 1)
Quarter: 2014Q1

REPORT INFORMATION
  Report Type: Report from Study
  Country: US (occurrence: US)
  Receive Date: 20140306
  Receipt Date: 20140306
  Transmission Date: 20141002
  Serious: No
  Sender: FDA-Public Use
  Company Number: US-ABBVIE-13P-163-1154600-00

PATIENT
  Age: 19 Year
  Sex: Female

DRUGS (4)
  1. HUMIRA [Suspect]
     Indication: ANKYLOSING SPONDYLITIS
     Dates: start: 201304
  2. SULFASALAZINE [Concomitant]
     Indication: ANKYLOSING SPONDYLITIS
  3. NABUMETONE [Concomitant]
     Indication: PAIN
  4. DOXYCYCLINE [Concomitant]
     Indication: ACNE
     Dosage: 50MG DAILY

REACTIONS (2)
  - Injection site pain [Recovered/Resolved]
  - Injection site bruising [Recovered/Resolved]
